FAERS Safety Report 25582850 (Version 1)
Quarter: 2025Q3

REPORT INFORMATION
  Report Type: Spontaneous
  Country: US (occurrence: US)
  Receive Date: 20250720
  Receipt Date: 20250720
  Transmission Date: 20251020
  Serious: Yes (Other)
  Sender: BEIGENE
  Company Number: US-BEIGENE-BGN-2025-011656

PATIENT
  Age: 85 Year

DRUGS (3)
  1. BRUKINSA [Suspect]
     Active Substance: ZANUBRUTINIB
     Indication: Chronic lymphocytic leukaemia
     Dosage: 160 MILLIGRAM, ONE CAPSULE IN THE MORNING AND ONE AT NIGHT
  2. BRUKINSA [Suspect]
     Active Substance: ZANUBRUTINIB
  3. BRUKINSA [Suspect]
     Active Substance: ZANUBRUTINIB
     Dosage: 240 MILLIGRAM, 2 CAPSULES IN THE MORNING, 1 CAPSULE AT NIGHT

REACTIONS (6)
  - Disease progression [Unknown]
  - Contusion [Not Recovered/Not Resolved]
  - Injury [Unknown]
  - Arthralgia [Unknown]
  - Limb injury [Unknown]
  - Anticipatory anxiety [Unknown]
